FAERS Safety Report 4535075-2 (Version None)
Quarter: 2004Q4

REPORT INFORMATION
  Report Type: 
  Country: None (occurrence: None)
  Receive Date: 20041222
  Receipt Date: 20041214
  Transmission Date: 20050328
  Serious: Yes (Hospitalization)
  Sender: FDA-Public Use
  Company Number: US-ROCHE-389461

PATIENT
  Age: 61 Year
  Sex: Male

DRUGS (3)
  1. FUZEON [Suspect]
     Indication: DRUG USE FOR UNKNOWN INDICATION
     Route: 065
     Dates: start: 20041126
  2. KALETRA [Concomitant]
     Dates: start: 20041126
  3. VIDEX [Concomitant]
     Dates: start: 20041126

REACTIONS (4)
  - ALANINE AMINOTRANSFERASE INCREASED [None]
  - ASPARTATE AMINOTRANSFERASE INCREASED [None]
  - HYPERSENSITIVITY [None]
  - RHABDOMYOLYSIS [None]
